FAERS Safety Report 7956578-4 (Version None)
Quarter: 2011Q4

REPORT INFORMATION
  Report Type: 
  Country: None (occurrence: None)
  Receive Date: 20111205
  Receipt Date: 20111128
  Transmission Date: 20120403
  Serious: Yes (Other)
  Sender: FDA-Public Use
  Company Number: PHHY2011FR104175

PATIENT
  Age: 53 Year
  Sex: Female

DRUGS (1)
  1. ZOLEDRONOC ACID [Suspect]
     Indication: OSTEOPOROSIS
     Dosage: UNK UKN, UNK
     Route: 042
     Dates: start: 20111101

REACTIONS (6)
  - VIRAL TEST POSITIVE [None]
  - MUSCULOSKELETAL STIFFNESS [None]
  - PYREXIA [None]
  - EYELID PTOSIS [None]
  - INFLUENZA LIKE ILLNESS [None]
  - VIITH NERVE PARALYSIS [None]
